FAERS Safety Report 5153916-5 (Version None)
Quarter: 2006Q4

REPORT INFORMATION
  Report Type: 
  Country: None (occurrence: None)
  Receive Date: 20061120
  Receipt Date: 20061002
  Transmission Date: 20070319
  Serious: Yes (Disabling)
  Sender: FDA-Public Use
  Company Number: CHWYE102103OCT06

PATIENT
  Age: 49 Year
  Sex: Male
  Weight: 72 kg

DRUGS (1)
  1. ENBREL [Suspect]
     Indication: PSORIATIC ARTHROPATHY
     Route: 058
     Dates: start: 20050901, end: 20060928

REACTIONS (1)
  - OSTEONECROSIS [None]
